FAERS Safety Report 21018223 (Version 1)
Quarter: 2022Q2

REPORT INFORMATION
  Report Type: Spontaneous
  Country: CN (occurrence: CN)
  Receive Date: 20220628
  Receipt Date: 20220628
  Transmission Date: 20220721
  Serious: Yes (Hospitalization, Other)
  Sender: FDA-Public Use
  Company Number: CN-PFIZER INC-PV202200009534

PATIENT
  Age: 10 Year
  Sex: Female
  Weight: 30 kg

DRUGS (1)
  1. SERTRALINE HYDROCHLORIDE [Suspect]
     Active Substance: SERTRALINE HYDROCHLORIDE
     Indication: Antidepressant therapy
     Dosage: 50 MG, 1X/DAY
     Route: 048
     Dates: start: 20220524, end: 20220530

REACTIONS (7)
  - Suicidal ideation [Unknown]
  - Intentional self-injury [Unknown]
  - Drug eruption [Recovering/Resolving]
  - Dysphoria [Unknown]
  - Skin irritation [Unknown]
  - Crying [Unknown]
  - Scratch [Unknown]

NARRATIVE: CASE EVENT DATE: 20220528
